FAERS Safety Report 10182635 (Version 1)
Quarter: 2014Q2

REPORT INFORMATION
  Report Type: Spontaneous
  Country: US (occurrence: None)
  Receive Date: 20140519
  Receipt Date: 20140519
  Transmission Date: 20141212
  Serious: No
  Sender: FDA-Public Use
  Company Number: None

PATIENT
  Age: 65 Year
  Sex: Female

DRUGS (11)
  1. FORTEO [Suspect]
     Indication: SENILE OSTEOPOROSIS
     Route: 058
     Dates: start: 20130711
  2. PLAVIX [Concomitant]
  3. CLONIDINE [Concomitant]
  4. SULAR [Concomitant]
  5. LYRICA [Concomitant]
  6. COREG [Concomitant]
  7. ZOCOR [Concomitant]
  8. CLONAZEPAM [Concomitant]
  9. VITAMIN B-12 [Concomitant]
  10. ASPIRIN [Concomitant]
  11. NEXIUM [Concomitant]

REACTIONS (1)
  - Nausea [None]
